FAERS Safety Report 17832372 (Version 1)
Quarter: 2020Q2

REPORT INFORMATION
  Report Type: Spontaneous
  Country: US (occurrence: US)
  Receive Date: 20200527
  Receipt Date: 20200527
  Transmission Date: 20200714
  Serious: No
  Sender: FDA-Public Use
  Company Number: US-TEVA-2020-US-1241125

PATIENT
  Sex: Male

DRUGS (2)
  1. NUVIGIL [Suspect]
     Active Substance: ARMODAFINIL
     Dosage: 100MG AT NIGHT, START DATE: 2016 OR 2017
     Route: 065
  2. NUVIGIL [Suspect]
     Active Substance: ARMODAFINIL
     Indication: NARCOLEPSY
     Dosage: FREQUENCY: 200MG IN THE MORNING START DATE: 2016 OR 2017
     Route: 065

REACTIONS (3)
  - Anger [Unknown]
  - Cluster headache [Unknown]
  - Frustration tolerance decreased [Unknown]
